FAERS Safety Report 18890462 (Version 1)
Quarter: 2021Q1

REPORT INFORMATION
  Report Type: Report from Study
  Country: DE (occurrence: DE)
  Receive Date: 20210214
  Receipt Date: 20210214
  Transmission Date: 20210420
  Serious: Yes (Other)
  Sender: FDA-Public Use
  Company Number: DE-SUN PHARMACEUTICAL INDUSTRIES LTD-2021R1-279443

PATIENT
  Sex: Female

DRUGS (8)
  1. SEVOFLURANE. [Concomitant]
     Active Substance: SEVOFLURANE
     Indication: TONSILLECTOMY
     Route: 065
  2. ROCURONIUM [Concomitant]
     Active Substance: ROCURONIUM BROMIDE
     Indication: TONSILLECTOMY
     Route: 065
  3. ALFENTANIL. [Concomitant]
     Active Substance: ALFENTANIL
     Indication: TONSILLECTOMY
     Route: 065
  4. PARACETAMOL [Suspect]
     Active Substance: ACETAMINOPHEN
     Indication: PRODUCT USED FOR UNKNOWN INDICATION
     Dosage: 500 MILLIGRAM, DAILY
     Route: 065
  5. AMPICILLIN [Concomitant]
     Active Substance: AMPICILLIN
     Indication: TONSILLECTOMY
     Route: 065
  6. ATROPINE. [Concomitant]
     Active Substance: ATROPINE
     Indication: TONSILLECTOMY
     Route: 065
  7. METAMIZOLE [Concomitant]
     Active Substance: METAMIZOLE
     Indication: TONSILLECTOMY
     Route: 065
  8. SULBACTAM [Concomitant]
     Active Substance: SULBACTAM
     Indication: TONSILLECTOMY
     Route: 065

REACTIONS (2)
  - Stillbirth [Unknown]
  - Exposure during pregnancy [Unknown]
